FAERS Safety Report 20414178 (Version 1)
Quarter: 2022Q1

REPORT INFORMATION
  Report Type: Spontaneous
  Country: US (occurrence: US)
  Receive Date: 20220201
  Receipt Date: 20220201
  Transmission Date: 20220423
  Serious: No
  Sender: FDA-Public Use
  Company Number: US-AMGEN-USASP2022016483

PATIENT
  Sex: Female

DRUGS (2)
  1. OTEZLA [Suspect]
     Active Substance: APREMILAST
     Indication: Product used for unknown indication
     Dosage: UNK
     Route: 065
     Dates: end: 20220118
  2. SKYRIZI [Suspect]
     Active Substance: RISANKIZUMAB-RZAA
     Indication: Psoriasis
     Dosage: 75 MILLIGRAM, WEEK 0, THEN WEEK 4, THEN EVERY 12 WEEKS THEREAFTER (150 MG,1 IN 12 WK)
     Route: 058
     Dates: start: 20210817

REACTIONS (3)
  - Vomiting [Unknown]
  - Diarrhoea [Unknown]
  - Psoriasis [Unknown]
